FAERS Safety Report 6604872-1 (Version None)
Quarter: 2010Q1

REPORT INFORMATION
  Report Type: 
  Country: None (occurrence: None)
  Receive Date: 20100226
  Receipt Date: 20100222
  Transmission Date: 20100710
  Serious: Yes (Death, Hospitalization)
  Sender: FDA-Public Use
  Company Number: A0846696A

PATIENT
  Age: 97 Year
  Sex: Male

DRUGS (5)
  1. SERETIDE [Suspect]
     Route: 055
     Dates: start: 20060101, end: 20100207
  2. METFORMIN HYDROCHLORIDE [Concomitant]
     Dosage: 1TAB TWICE PER DAY
     Route: 065
     Dates: start: 20050101, end: 20100207
  3. DOXAZOSIN MESILATE [Concomitant]
     Dosage: 1TAB PER DAY
     Dates: start: 20080101, end: 20100207
  4. INSULIN [Concomitant]
     Dates: start: 20060101, end: 20100207
  5. DIGOXIN [Concomitant]
     Dosage: 1TAB VARIABLE DOSE
     Dates: start: 20060101, end: 20100207

REACTIONS (3)
  - DECREASED APPETITE [None]
  - MULTI-ORGAN FAILURE [None]
  - PALLOR [None]
